FAERS Safety Report 17133144 (Version 1)
Quarter: 2019Q4

REPORT INFORMATION
  Report Type: Spontaneous
  Country: IT (occurrence: IT)
  Receive Date: 20191209
  Receipt Date: 20191209
  Transmission Date: 20200122
  Serious: Yes (Hospitalization, Disabling)
  Sender: FDA-Public Use
  Company Number: None

PATIENT
  Age: 54 Year
  Sex: Female
  Weight: 40 kg

DRUGS (1)
  1. KEYTRUDA [Suspect]
     Active Substance: PEMBROLIZUMAB
     Indication: THYMOMA
     Dates: start: 20190705, end: 20190705

REACTIONS (5)
  - Myasthenia gravis crisis [None]
  - Haemodynamic instability [None]
  - Polymyositis [None]
  - Acute respiratory failure [None]
  - Myositis [None]

NARRATIVE: CASE EVENT DATE: 20190729
